FAERS Safety Report 4774703-3 (Version None)
Quarter: 2005Q3

REPORT INFORMATION
  Report Type: 
  Country: None (occurrence: None)
  Receive Date: 20050919
  Receipt Date: 20050906
  Transmission Date: 20060218
  Serious: Yes (Other)
  Sender: FDA-Public Use
  Company Number: PHNU2005DE03098

PATIENT
  Age: 94 Year
  Sex: Male

DRUGS (2)
  1. VISUDYNE [Suspect]
     Indication: CHOROIDAL NEOVASCULARISATION
     Dates: start: 20031024, end: 20031024
  2. VISUDYNE [Suspect]
     Indication: MACULAR DEGENERATION
     Dates: start: 20031024, end: 20031024

REACTIONS (6)
  - MASS [None]
  - METAMORPHOPSIA [None]
  - RETINAL HAEMORRHAGE [None]
  - SUBRETINAL FIBROSIS [None]
  - VISION BLURRED [None]
  - VISUAL ACUITY REDUCED [None]
